FAERS Safety Report 17723426 (Version 2)
Quarter: 2020Q2

REPORT INFORMATION
  Report Type: Report from Study
  Country: None (occurrence: US)
  Receive Date: 20200429
  Receipt Date: 20200615
  Transmission Date: 20200714
  Serious: Yes (Other)
  Sender: FDA-Public Use
  Company Number: US-ABBVIE-20K-163-3379761-00

PATIENT
  Age: 86 Year
  Sex: Female

DRUGS (1)
  1. HUMIRA [Suspect]
     Active Substance: ADALIMUMAB
     Indication: CROHN^S DISEASE
     Route: 058

REACTIONS (13)
  - Gastric ulcer haemorrhage [Unknown]
  - Weight decreased [Not Recovered/Not Resolved]
  - Abdominal pain upper [Not Recovered/Not Resolved]
  - Fall [Recovering/Resolving]
  - Weight bearing difficulty [Unknown]
  - Limb injury [Recovering/Resolving]
  - Fat tissue decreased [Not Recovered/Not Resolved]
  - Fatigue [Unknown]
  - Cholecystectomy [Not Recovered/Not Resolved]
  - Laziness [Unknown]
  - Contusion [Unknown]
  - Diarrhoea [Unknown]
  - Abdominal pain [Unknown]

NARRATIVE: CASE EVENT DATE: 2019
